FAERS Safety Report 4852931-6 (Version None)
Quarter: 2005Q4

REPORT INFORMATION
  Report Type: 
  Country: None (occurrence: None)
  Receive Date: 20051212
  Receipt Date: 20051128
  Transmission Date: 20060501
  Serious: Yes (Other)
  Sender: FDA-Public Use
  Company Number: 2005162491

PATIENT
  Sex: Male
  Weight: 68.0396 kg

DRUGS (2)
  1. VIAGRA [Suspect]
     Indication: ILL-DEFINED DISORDER
     Dosage: 25 MG, ORAL
     Route: 048
     Dates: start: 20000101, end: 20040601
  2. CIALIS [Concomitant]

REACTIONS (4)
  - BLINDNESS UNILATERAL [None]
  - CYANOPSIA [None]
  - DRUG INEFFECTIVE [None]
  - OPTIC NEURITIS [None]
